FAERS Safety Report 6937490-6 (Version None)
Quarter: 2010Q3

REPORT INFORMATION
  Report Type: 
  Country: None (occurrence: None)
  Receive Date: 20100823
  Receipt Date: 20100813
  Transmission Date: 20110219
  Serious: Yes (Hospitalization)
  Sender: FDA-Public Use
  Company Number: DE-AMGEN-US406324

PATIENT
  Sex: Female
  Weight: 79.2 kg

DRUGS (5)
  1. ENBREL [Suspect]
     Indication: RHEUMATOID ARTHRITIS
     Route: 058
     Dates: start: 20091212, end: 20100301
  2. GLUCOCORTICOIDS [Concomitant]
     Dosage: UNKNOWN
  3. ALLOPURINOL [Concomitant]
     Dosage: UNKNOWN
  4. MTX [Concomitant]
     Dosage: UNKNOWN
  5. UNSPECIFIED ANTICOAGULANT [Concomitant]

REACTIONS (2)
  - PULMONARY EMBOLISM [None]
  - VENOUS THROMBOSIS [None]
